FAERS Safety Report 4373411-0 (Version None)
Quarter: 2004Q2

REPORT INFORMATION
  Report Type: 
  Country: None (occurrence: None)
  Receive Date: 20040603
  Receipt Date: 20040520
  Transmission Date: 20050107
  Serious: No
  Sender: FDA-Public Use
  Company Number: 2004211315GB

PATIENT
  Sex: Female
  Weight: 50 kg

DRUGS (6)
  1. BEXTRA [Suspect]
     Dosage: SEE IMAGE
     Route: 048
     Dates: start: 20040429
  2. BUPRENORPHINE (BUPRENORPHINE) [Suspect]
     Indication: RHEUMATOID ARTHRITIS
     Dosage: 112.5 UG/HR, TID
  3. AMITRIPTYLINE HCL [Concomitant]
  4. GABAPENTIN [Concomitant]
  5. PREDNISOLONE [Concomitant]
  6. TEMAZEPAM [Concomitant]

REACTIONS (1)
  - HALLUCINATION [None]
